FAERS Safety Report 8234696-3 (Version None)
Quarter: 2012Q1

REPORT INFORMATION
  Report Type: 
  Country: None (occurrence: None)
  Receive Date: 20120326
  Receipt Date: 20120320
  Transmission Date: 20120608
  Serious: Yes (Other)
  Sender: FDA-Public Use
  Company Number: US-PFIZER INC-2012073371

PATIENT

DRUGS (1)
  1. LEVOXYL [Suspect]
     Dosage: 75 UG, UNK

REACTIONS (2)
  - COELIAC DISEASE [None]
  - OSTEOPENIA [None]
